FAERS Safety Report 22912680 (Version 2)
Quarter: 2023Q4

REPORT INFORMATION
  Report Type: Spontaneous
  Country: US (occurrence: US)
  Receive Date: 20230906
  Receipt Date: 20231010
  Transmission Date: 20240109
  Serious: No
  Sender: FDA-Public Use
  Company Number: US-Calliditas-2023CAL01089

PATIENT
  Age: 72 Year
  Sex: Female
  Weight: 57.17 kg

DRUGS (1)
  1. TARPEYO [Suspect]
     Active Substance: BUDESONIDE
     Indication: Selective IgA immunodeficiency
     Dosage: 16 MG (4 MG CAPSULES) ONCE DAILY
     Route: 048
     Dates: start: 20230609, end: 20230927

REACTIONS (4)
  - COVID-19 [Unknown]
  - Abdominal discomfort [Unknown]
  - Palpitations [Unknown]
  - Hypertension [Unknown]
